FAERS Safety Report 5781676-3 (Version None)
Quarter: 2008Q2

REPORT INFORMATION
  Report Type: 
  Country: None (occurrence: None)
  Receive Date: 20080623
  Receipt Date: 20071106
  Transmission Date: 20081010
  Serious: No
  Sender: FDA-Public Use
  Company Number: US-ASTRAZENECA-2007UW18390

PATIENT
  Age: 82 Year
  Sex: Male
  Weight: 81.6 kg

DRUGS (5)
  1. RHINOCORT [Suspect]
     Indication: POSTNASAL DRIP
     Route: 045
  2. RHINOCORT [Suspect]
     Indication: HYPERSENSITIVITY
     Route: 045
  3. AGGRENOX [Concomitant]
  4. LIPITOR [Concomitant]
  5. CLARITIN [Concomitant]

REACTIONS (1)
  - LACERATION [None]
